FAERS Safety Report 4346261-9 (Version None)
Quarter: 2004Q1

REPORT INFORMATION
  Report Type: 
  Country: None (occurrence: None)
  Receive Date: 20040325
  Receipt Date: 20031202
  Transmission Date: 20041129
  Serious: No
  Sender: FDA-Public Use
  Company Number: USA030947626

PATIENT
  Age: 69 Year
  Sex: Female
  Weight: 33 kg

DRUGS (9)
  1. FORTEO [Suspect]
     Indication: OSTEOPOROSIS
     Dosage: 20 UG/1 DAY
     Dates: start: 20021212
  2. CALCIUM [Concomitant]
  3. MVI (MVI) [Concomitant]
  4. BENADRYL [Concomitant]
  5. VIOXX [Concomitant]
  6. PENTA-TRIAMTERENE HCTZ [Concomitant]
  7. HUMIRA (HUMIRA) [Concomitant]
  8. SYNTHROID [Concomitant]
  9. LACRISERT (HYPROLOSE) [Concomitant]

REACTIONS (1)
  - BLOOD CALCIUM INCREASED [None]
